FAERS Safety Report 21178260 (Version 6)
Quarter: 2023Q1

REPORT INFORMATION
  Report Type: Spontaneous
  Country: US (occurrence: US)
  Receive Date: 20220805
  Receipt Date: 20230215
  Transmission Date: 20230418
  Serious: Yes (Life-Threatening, Hospitalization, Other)
  Sender: FDA-Public Use
  Company Number: US-PFIZER INC-PV202200036037

PATIENT
  Age: 27 Year
  Sex: Male

DRUGS (17)
  1. LORAZEPAM [Suspect]
     Active Substance: LORAZEPAM
     Indication: Status epilepticus
     Dosage: UNK
  2. LEVETIRACETAM [Suspect]
     Active Substance: LEVETIRACETAM
     Indication: Status epilepticus
     Dosage: 6000 MG, 1X/DAY
  3. LEVETIRACETAM [Suspect]
     Active Substance: LEVETIRACETAM
     Dosage: 8000 MG 1X/DAY
  4. LEVETIRACETAM [Suspect]
     Active Substance: LEVETIRACETAM
     Dosage: 4000 MG 1X/DAY
  5. LEVETIRACETAM [Suspect]
     Active Substance: LEVETIRACETAM
     Dosage: 8000 MG 1X/DAY
  6. LEVETIRACETAM [Suspect]
     Active Substance: LEVETIRACETAM
     Dosage: 4000 MG 1X/DAY
  7. PHENYTOIN [Suspect]
     Active Substance: PHENYTOIN
     Indication: Status epilepticus
     Dosage: 450 MG, 1X/DAY
  8. PHENYTOIN [Suspect]
     Active Substance: PHENYTOIN
     Dosage: 900 MG, 1X/DAY
  9. PHENYTOIN [Suspect]
     Active Substance: PHENYTOIN
     Dosage: 900 MG, 1X/DAY
  10. PHENYTOIN [Suspect]
     Active Substance: PHENYTOIN
     Dosage: 600 MG, 1X/DAY
  11. LACOSAMIDE [Suspect]
     Active Substance: LACOSAMIDE
     Indication: Status epilepticus
     Dosage: 400 MG, 1X/DAY
  12. LACOSAMIDE [Suspect]
     Active Substance: LACOSAMIDE
     Dosage: 300 MG, 1X/DAY
  13. LACOSAMIDE [Suspect]
     Active Substance: LACOSAMIDE
     Dosage: 200 MG, 1X/DAY
  14. LACOSAMIDE [Suspect]
     Active Substance: LACOSAMIDE
     Dosage: 400 MG, 1X/DAY
  15. CLOBAZAM [Suspect]
     Active Substance: CLOBAZAM
     Indication: Status epilepticus
     Dosage: 40 MG, 1X/DAY
  16. CLOBAZAM [Suspect]
     Active Substance: CLOBAZAM
     Dosage: 20 MG, 1X/DAY
  17. CLOBAZAM [Suspect]
     Active Substance: CLOBAZAM
     Dosage: 10 MG, 1X/DAY

REACTIONS (1)
  - Drug resistance [Unknown]
